FAERS Safety Report 7482763-4 (Version None)
Quarter: 2011Q2

REPORT INFORMATION
  Report Type: 
  Country: None (occurrence: None)
  Receive Date: 20110516
  Receipt Date: 20110106
  Transmission Date: 20111010
  Serious: No
  Sender: FDA-Public Use
  Company Number: US-BAYER-2011-029808

PATIENT
  Age: 62 Year
  Sex: Male
  Weight: 66 kg

DRUGS (3)
  1. OMEGA 3 FATTY ACIDS [Concomitant]
  2. ALEVE (CAPLET) [Suspect]
     Indication: SINUS HEADACHE
     Dosage: 1 DF, ONCE, BOTTLE COUNT  130CT
     Route: 048
  3. ALEVE (CAPLET) [Suspect]
     Indication: NECK PAIN

REACTIONS (3)
  - HYPERSENSITIVITY [None]
  - PRURITUS [None]
  - ERYTHEMA [None]
